FAERS Safety Report 26045861 (Version 2)
Quarter: 2025Q4

REPORT INFORMATION
  Report Type: Spontaneous
  Country: CH (occurrence: CH)
  Receive Date: 20251114
  Receipt Date: 20251211
  Transmission Date: 20260118
  Serious: Yes (Hospitalization, Disabling, Other)
  Sender: RANBAXY
  Company Number: CH-SUN PHARMACEUTICAL INDUSTRIES LTD-2025R1-533052

PATIENT
  Age: 41 Year
  Sex: Male

DRUGS (1)
  1. CIPROFLOXACIN [Suspect]
     Active Substance: CIPROFLOXACIN
     Indication: Product used for unknown indication
     Dosage: 3 GRAM
     Route: 065

REACTIONS (4)
  - Tendon pain [Unknown]
  - Palpitations [Unknown]
  - Paraesthesia [Unknown]
  - Tenosynovitis [Unknown]
